FAERS Safety Report 4491257-X (Version None)
Quarter: 2004Q4

REPORT INFORMATION
  Report Type: 
  Country: None (occurrence: None)
  Receive Date: 20041027
  Receipt Date: 20041022
  Transmission Date: 20050328
  Serious: Yes (Hospitalization)
  Sender: FDA-Public Use
  Company Number: 200412920GDS

PATIENT
  Age: 56 Year
  Sex: Male

DRUGS (6)
  1. ASPIRIN [Suspect]
     Dosage: 100 MG, TOTAL DAILY, ORAL
     Route: 048
     Dates: start: 20040719
  2. ATENOLOL [Suspect]
     Indication: HYPERTENSION
     Dosage: 100 MG, TOTAL DAILY, ORAL
     Route: 048
     Dates: start: 20040719
  3. SIMVASTATIN [Suspect]
     Indication: HYPERCHOLESTEROLAEMIA
     Dosage: 20 MG, TOTAL DAILY, ORAL
     Route: 048
     Dates: start: 20040719
  4. CIPROFLOXACIN [Concomitant]
  5. VANCOMYCIN [Concomitant]
  6. IMIPENEM [Concomitant]

REACTIONS (1)
  - HENOCH-SCHONLEIN PURPURA [None]
